FAERS Safety Report 6889835-3 (Version None)
Quarter: 2010Q3

REPORT INFORMATION
  Report Type: 
  Country: None (occurrence: None)
  Receive Date: 20100730
  Receipt Date: 20080508
  Transmission Date: 20110219
  Serious: No
  Sender: FDA-Public Use
  Company Number: US-PFIZER INC-2008040629

PATIENT
  Sex: Male
  Weight: 84.545 kg

DRUGS (2)
  1. LIPITOR [Suspect]
     Indication: BLOOD CHOLESTEROL ABNORMAL
     Dates: start: 20080101, end: 20080506
  2. METOPROLOL TARTRATE [Suspect]
     Dates: start: 20080101

REACTIONS (5)
  - ANGINA PECTORIS [None]
  - DIZZINESS [None]
  - FLUSHING [None]
  - MYALGIA [None]
  - POLLAKIURIA [None]
